FAERS Safety Report 9922074 (Version 4)
Quarter: 2014Q2

REPORT INFORMATION
  Report Type: Spontaneous
  Country: US (occurrence: US)
  Receive Date: 20140225
  Receipt Date: 20140407
  Transmission Date: 20141212
  Serious: Yes (Hospitalization, Other)
  Sender: FDA-Public Use
  Company Number: US-BAXTER-2014BAX009069

PATIENT
  Sex: Male

DRUGS (4)
  1. DIANEAL LOW CALCIUM [Suspect]
     Indication: RENAL FAILURE CHRONIC
     Route: 033
     Dates: start: 2010
  2. DIANEAL LOW CALCIUM [Suspect]
     Route: 033
     Dates: start: 2010
  3. DIANEAL LOW CALCIUM [Suspect]
     Indication: RENAL FAILURE CHRONIC
     Route: 033
     Dates: start: 2010
  4. DIANEAL LOW CALCIUM [Suspect]
     Route: 033
     Dates: start: 2010

REACTIONS (3)
  - Cellulitis [Recovering/Resolving]
  - Diabetic foot [Recovered/Resolved]
  - Poor peripheral circulation [Unknown]
